FAERS Safety Report 5501868-8 (Version None)
Quarter: 2007Q4

REPORT INFORMATION
  Report Type: 
  Country: None (occurrence: None)
  Receive Date: 20071030
  Receipt Date: 20070802
  Transmission Date: 20080405
  Serious: No
  Sender: FDA-Public Use
  Company Number: A0667875A

PATIENT
  Age: 78 Year
  Sex: Female

DRUGS (9)
  1. SEREVENT [Suspect]
     Indication: CHRONIC OBSTRUCTIVE PULMONARY DISEASE
     Dosage: 50MCG TWICE PER DAY
     Route: 055
     Dates: start: 20070627
  2. FUROSEMIDE [Concomitant]
  3. KLOR-CON [Concomitant]
  4. HYDROCHLOROTHIAZIDE [Concomitant]
  5. CELEBREX [Concomitant]
  6. ATENOLOL [Concomitant]
  7. LIPITOR [Concomitant]
  8. ASPIRIN [Concomitant]
  9. MULTI-VITAMIN [Concomitant]

REACTIONS (2)
  - BACK PAIN [None]
  - CHEST DISCOMFORT [None]
